FAERS Safety Report 25446863 (Version 3)
Quarter: 2025Q2

REPORT INFORMATION
  Report Type: Spontaneous
  Country: US (occurrence: US)
  Receive Date: 20250617
  Receipt Date: 20250620
  Transmission Date: 20250716
  Serious: No
  Sender: ALEXION PHARMACEUTICALS
  Company Number: US-AstraZeneca-CH-00890843AP

PATIENT

DRUGS (1)
  1. AIRSUPRA [Suspect]
     Active Substance: ALBUTEROL SULFATE\BUDESONIDE
     Route: 065

REACTIONS (6)
  - Device use issue [Unknown]
  - Product use issue [Unknown]
  - Wrong technique in device usage process [Unknown]
  - Bronchitis [Unknown]
  - Drug dose omission by device [Unknown]
  - Device delivery system issue [Unknown]
